FAERS Safety Report 11719273 (Version 2)
Quarter: 2015Q4

REPORT INFORMATION
  Report Type: Spontaneous
  Country: US (occurrence: US)
  Receive Date: 20151110
  Receipt Date: 20151112
  Transmission Date: 20160304
  Serious: Yes (Hospitalization, Other)
  Sender: FDA-Public Use
  Company Number: US-PFIZER INC-2015372115

PATIENT
  Age: 65 Year
  Sex: Male
  Weight: 100 kg

DRUGS (10)
  1. SUPER VITAMIN B COMPLEX [Concomitant]
     Indication: ASTHENIA
     Dosage: TAKES 1 OR 2 CAPSULES PER DAY
  2. LYRICA [Suspect]
     Active Substance: PREGABALIN
     Indication: POST HERPETIC NEURALGIA
     Dosage: 150 MG BEFORE BED
     Dates: start: 20151027
  3. TRAMADOL. [Concomitant]
     Active Substance: TRAMADOL
  4. LYRICA [Suspect]
     Active Substance: PREGABALIN
     Indication: SPINAL CORD DISORDER
     Dosage: 100MG X2
  5. LIPOFLAVONOID [Concomitant]
     Active Substance: UNSPECIFIED INGREDIENT
     Indication: TINNITUS
     Dosage: 2 CAPSULES A DAY
  6. LYRICA [Suspect]
     Active Substance: PREGABALIN
     Indication: SPINAL CORD INJURY
     Dosage: 200MG IN AM, AND 50MG AT BEDTIME
  7. LYRICA [Suspect]
     Active Substance: PREGABALIN
     Indication: FIBROMYALGIA
     Dosage: 200 MG
  8. VITAMIN D [Concomitant]
     Active Substance: CHOLECALCIFEROL
     Indication: IMMUNISATION
     Dosage: 2000 IU, ONCE PER DAY, BY MOUTH
     Route: 048
  9. VITAMIN C + E [Concomitant]
  10. LYRICA [Suspect]
     Active Substance: PREGABALIN
     Indication: NEURALGIA
     Dosage: 50 MG CAPSULES (1 OR TWO TO SLEEP)

REACTIONS (13)
  - Facial pain [Recovered/Resolved]
  - Depressed mood [Unknown]
  - Pyrexia [Unknown]
  - Asthenia [Unknown]
  - Rhinalgia [Recovered/Resolved]
  - Neuralgia [Recovered/Resolved]
  - Chronic lymphocytic leukaemia [Recovered/Resolved]
  - Weight increased [Not Recovered/Not Resolved]
  - Insomnia [Unknown]
  - Lung disorder [Unknown]
  - Vision blurred [Unknown]
  - Eye pain [Recovered/Resolved]
  - Drug ineffective [Unknown]

NARRATIVE: CASE EVENT DATE: 2013
